FAERS Safety Report 7439896-8 (Version None)
Quarter: 2011Q2

REPORT INFORMATION
  Report Type: 
  Country: None (occurrence: None)
  Receive Date: 20110427
  Receipt Date: 20110412
  Transmission Date: 20111010
  Serious: Yes (Hospitalization)
  Sender: FDA-Public Use
  Company Number: JP-ASTELLAS-2011JP002789

PATIENT
  Age: 78 Year
  Sex: Male

DRUGS (4)
  1. CETAPRIL [Concomitant]
     Dosage: 25 MG, UNKNOWN/D
     Route: 048
  2. VESICARE [Suspect]
     Dosage: 2.5 MG, UNKNOWN/D
     Route: 048
     Dates: end: 20110330
  3. AMLODIPINE [Concomitant]
     Dosage: 5 MG, UNKNOWN/D
     Route: 048
  4. SERMION [Concomitant]
     Dosage: 5 MG, UNKNOWN/D
     Route: 048

REACTIONS (3)
  - RHABDOMYOLYSIS [None]
  - BLOOD CREATINE PHOSPHOKINASE INCREASED [None]
  - HEPATIC FUNCTION ABNORMAL [None]
